FAERS Safety Report 12271656 (Version 1)
Quarter: 2016Q2

REPORT INFORMATION
  Report Type: Spontaneous
  Country: DE (occurrence: DE)
  Receive Date: 20160415
  Receipt Date: 20160415
  Transmission Date: 20160815
  Serious: Yes (Other)
  Sender: FDA-Public Use
  Company Number: DE-009507513-1604DEU005287

PATIENT
  Age: 38 Year
  Sex: Female

DRUGS (4)
  1. MENOTROPINS [Suspect]
     Active Substance: MENOTROPINS
     Indication: LUTEAL PHASE DEFICIENCY
     Dosage: UNK, 4 CYCLES OF ICSI
  2. FOLLITROPIN ALFA [Suspect]
     Active Substance: FOLLITROPIN
     Indication: LUTEAL PHASE DEFICIENCY
     Dosage: UNK, 4 CYCLES OF ICSI
  3. GANIRELIX ACETATE. [Suspect]
     Active Substance: GANIRELIX ACETATE
     Indication: LUTEAL PHASE DEFICIENCY
     Dosage: UNK, 4 CYCLES OF ICSI
  4. CHORIOGONADOTROPIN ALFA [Suspect]
     Active Substance: CHORIOGONADOTROPIN ALFA
     Indication: LUTEAL PHASE DEFICIENCY
     Dosage: UNK, 4 CYCLES OF ICSI

REACTIONS (1)
  - Multiple sclerosis [Unknown]
